FAERS Safety Report 6881790-5 (Version None)
Quarter: 2010Q3

REPORT INFORMATION
  Report Type: 
  Country: None (occurrence: None)
  Receive Date: 20100729
  Receipt Date: 20100720
  Transmission Date: 20110219
  Serious: Yes (Other)
  Sender: FDA-Public Use
  Company Number: JP-PFIZER INC-2010076612

PATIENT
  Age: 41 Year
  Sex: Male
  Weight: 70 kg

DRUGS (12)
  1. ZOLOFT [Suspect]
     Indication: DEPRESSIVE SYMPTOM
     Dosage: 25 MG, 1X/DAY
     Route: 048
     Dates: start: 20090820, end: 20090902
  2. ZOLOFT [Suspect]
     Dosage: 50 MG, 1X/DAY
     Route: 048
     Dates: start: 20090903, end: 20091028
  3. ZOLOFT [Suspect]
     Dosage: 75 MG, 1X/DAY
     Route: 048
     Dates: start: 20091029, end: 20100217
  4. ZOLOFT [Suspect]
     Dosage: 25 MG, 1X/DAY
     Route: 048
     Dates: start: 20100218, end: 20100304
  5. BLONANSERIN [Concomitant]
     Indication: SCHIZOPHRENIA
     Dosage: 12 MG, 2X/DAY
     Route: 048
     Dates: start: 20090611
  6. ZYPREXA [Concomitant]
     Indication: SCHIZOPHRENIA
     Dosage: 5 MG, 1X/DAY
     Route: 048
     Dates: start: 20070709
  7. AKINETON [Concomitant]
     Indication: AKATHISIA
     Dosage: 3 MG, 2X/DAY
     Route: 048
     Dates: start: 20071227
  8. CLONAZEPAM [Concomitant]
     Indication: AKATHISIA
     Dosage: 2 MG, 2X/DAY
     Route: 048
     Dates: start: 20090430
  9. ROHYPNOL [Concomitant]
     Indication: INSOMNIA
     Dosage: 2 MG, 1X/DAY
     Route: 048
     Dates: start: 20070823
  10. DEPAS [Concomitant]
     Indication: INSOMNIA
     Dosage: 1 MG, 1X/DAY
     Route: 048
     Dates: start: 20080410
  11. TETRAMIDE [Concomitant]
     Indication: INSOMNIA
     Dosage: 60 MG, 1X/DAY
     Route: 048
     Dates: start: 20090514
  12. LENDORMIN [Concomitant]
     Indication: INSOMNIA
     Dosage: 0.25 MG ONCE DAILY AS NEEDED
     Route: 048
     Dates: start: 20080619

REACTIONS (1)
  - POLYCYTHAEMIA [None]
